FAERS Safety Report 15133406 (Version 4)
Quarter: 2021Q2

REPORT INFORMATION
  Report Type: Spontaneous
  Country: US (occurrence: US)
  Receive Date: 20180712
  Receipt Date: 20210517
  Transmission Date: 20210716
  Serious: No
  Sender: FDA-Public Use
  Company Number: US-PFIZER INC-2018279708

PATIENT
  Age: 5 Year
  Sex: Male

DRUGS (3)
  1. GENOTROPIN MQ [Suspect]
     Active Substance: SOMATROPIN
     Dosage: 0.4 MG FOR 3 DAYS, [0.4MG/DAY, 7DAYS/WK]
  2. GENOTROPIN MQ [Suspect]
     Active Substance: SOMATROPIN
     Dosage: 0.2 MG FOR 4 DAYS
  3. GENOTROPIN MQ [Suspect]
     Active Substance: SOMATROPIN
     Indication: HYPOPITUITARISM
     Dosage: 0.4 MG, DAILY (0.4MG/DAY, 7DAYS/WK)
     Dates: start: 201302

REACTIONS (4)
  - Intentional product misuse [Unknown]
  - Off label use [Unknown]
  - Weight increased [Unknown]
  - Dyspnoea [Unknown]
